FAERS Safety Report 9960670 (Version 1)
Quarter: 2014Q1

REPORT INFORMATION
  Report Type: Report from Study
  Country: US (occurrence: US)
  Receive Date: 20140305
  Receipt Date: 20140305
  Transmission Date: 20141002
  Serious: No
  Sender: FDA-Public Use
  Company Number: US-ABBVIE-13P-163-1110048-00

PATIENT
  Age: 7 Year
  Sex: Male
  Weight: 25.88 kg

DRUGS (4)
  1. HUMIRA [Suspect]
     Indication: UVEITIS
     Dates: start: 201305
  2. HUMIRA [Suspect]
     Indication: UVEITIS
     Dates: start: 201303, end: 201305
  3. PREDNISONE [Concomitant]
     Indication: CATARACT
     Route: 047
     Dates: start: 201202
  4. ALPHAGAN [Concomitant]
     Indication: CATARACT
     Route: 047
     Dates: start: 201202

REACTIONS (2)
  - Off label use [Unknown]
  - Injection site pain [Not Recovered/Not Resolved]
